FAERS Safety Report 17891349 (Version 3)
Quarter: 2020Q3

REPORT INFORMATION
  Report Type: Report from Study
  Country: CA (occurrence: CA)
  Receive Date: 20200612
  Receipt Date: 20200908
  Transmission Date: 20201103
  Serious: Yes (Other)
  Sender: FDA-Public Use
  Company Number: PHHY2019CA186483

PATIENT
  Age: 75 Year
  Sex: Female

DRUGS (3)
  1. SANDOSTATIN LAR DEPOT [Suspect]
     Active Substance: OCTREOTIDE ACETATE
     Indication: NEUROENDOCRINE TUMOUR
     Dosage: UNK
     Route: 065
     Dates: start: 20190709
  2. SANDOSTATIN LAR DEPOT [Suspect]
     Active Substance: OCTREOTIDE ACETATE
  3. SANDOSTATIN LAR DEPOT [Suspect]
     Active Substance: OCTREOTIDE ACETATE
     Indication: CARCINOID TUMOUR
     Dosage: 30 MG, Q4W
     Route: 030
     Dates: start: 20190708

REACTIONS (18)
  - Fall [Unknown]
  - Stress fracture [Recovering/Resolving]
  - Sinus congestion [Recovering/Resolving]
  - Body temperature decreased [Unknown]
  - Pruritus [Unknown]
  - Heart rate decreased [Unknown]
  - Hyperhidrosis [Recovered/Resolved]
  - Dizziness [Recovered/Resolved]
  - Feeling hot [Recovered/Resolved]
  - Rib fracture [Unknown]
  - Rhinorrhoea [Unknown]
  - Blood pressure systolic increased [Unknown]
  - Oropharyngeal pain [Recovering/Resolving]
  - Inappropriate schedule of product administration [Unknown]
  - Heart rate increased [Unknown]
  - Nasopharyngitis [Recovering/Resolving]
  - Cold sweat [Unknown]
  - Dizziness [Recovered/Resolved]

NARRATIVE: CASE EVENT DATE: 2019
